FAERS Safety Report 15851671 (Version 1)
Quarter: 2019Q1

REPORT INFORMATION
  Report Type: Spontaneous
  Country: LT (occurrence: LT)
  Receive Date: 20190122
  Receipt Date: 20190122
  Transmission Date: 20190417
  Serious: Yes (Hospitalization)
  Sender: FDA-Public Use
  Company Number: LT-ACCORD-102754

PATIENT
  Age: 42 Year
  Sex: Female
  Weight: 70 kg

DRUGS (5)
  1. DIAZEPAM. [Suspect]
     Active Substance: DIAZEPAM
     Indication: SUICIDE ATTEMPT
     Route: 048
  2. QUETIAPINE. [Suspect]
     Active Substance: QUETIAPINE
     Indication: PRODUCT USED FOR UNKNOWN INDICATION
     Route: 048
  3. ENALAPRIL [Suspect]
     Active Substance: ENALAPRIL
     Indication: SUICIDE ATTEMPT
     Route: 048
  4. RAMIPRIL. [Suspect]
     Active Substance: RAMIPRIL
     Indication: SUICIDE ATTEMPT
     Route: 048
  5. METOPROLOL. [Suspect]
     Active Substance: METOPROLOL
     Indication: SUICIDE ATTEMPT
     Route: 048

REACTIONS (4)
  - Suicide attempt [Unknown]
  - Somnolence [Recovered/Resolved]
  - Stupor [Recovered/Resolved]
  - Hypotension [Recovered/Resolved]

NARRATIVE: CASE EVENT DATE: 20180327
